FAERS Safety Report 7834385-0 (Version None)
Quarter: 2011Q4

REPORT INFORMATION
  Report Type: 
  Country: None (occurrence: None)
  Receive Date: 20111024
  Receipt Date: 20111019
  Transmission Date: 20120403
  Serious: Yes (Death)
  Sender: FDA-Public Use
  Company Number: PHBS2008GB05763

PATIENT
  Age: 62 Year
  Sex: Male

DRUGS (4)
  1. FLUDARABINE PHOSPHATE [Suspect]
  2. MELPHALAN HYDROCHLORIDE [Concomitant]
  3. CYCLOSPORINE [Suspect]
     Indication: BONE MARROW TRANSPLANT
  4. CAMPATH [Concomitant]
     Dosage: 10 MG/DAY D-3, D-2, D-1

REACTIONS (9)
  - MASS [None]
  - DYSPHAGIA [None]
  - PYREXIA [None]
  - EPSTEIN-BARR VIRUS ASSOCIATED LYMPHOPROLIFERATIVE DISORDER [None]
  - OROPHARYNGEAL PAIN [None]
  - SINUS DISORDER [None]
  - EPSTEIN-BARR VIRUS INFECTION [None]
  - DYSPNOEA [None]
  - HYPOXIA [None]
